FAERS Safety Report 8976698 (Version 1)
Quarter: 2012Q4

REPORT INFORMATION
  Report Type: 
  Country: US (occurrence: US)
  Receive Date: 20121219
  Receipt Date: 20121219
  Transmission Date: 20130627
  Serious: No
  Sender: FDA-Public Use
  Company Number: US-AMGEN-USASP2012060278

PATIENT
  Sex: Female

DRUGS (7)
  1. PROLIA [Suspect]
     Indication: OSTEOPOROSIS POSTMENOPAUSAL
     Dosage: UNK UNK, UNK
     Dates: start: 201208
  2. METFORMIN [Concomitant]
     Dosage: 500 mg, qid
  3. REGLAN [Concomitant]
     Dosage: UNK
  4. TRICOR [Concomitant]
     Dosage: 160 mg, UNK
  5. PRILOSEC [Concomitant]
     Dosage: 40 mg, qd
  6. CALCIUM [Concomitant]
     Dosage: UNK
  7. VITAMIN D NOS [Concomitant]
     Dosage: UNK

REACTIONS (2)
  - Impaired healing [Not Recovered/Not Resolved]
  - Treatment noncompliance [Not Recovered/Not Resolved]
